FAERS Safety Report 23165888 (Version 2)
Quarter: 2023Q4

REPORT INFORMATION
  Report Type: Spontaneous
  Country: CH (occurrence: CH)
  Receive Date: 20231109
  Receipt Date: 20231122
  Transmission Date: 20240110
  Serious: Yes (Hospitalization, Other)
  Sender: FDA-Public Use
  Company Number: CH-TEVA-2023-CH-2942739

PATIENT
  Age: 40 Year
  Sex: Male

DRUGS (37)
  1. GEMCITABINE [Suspect]
     Active Substance: GEMCITABINE
     Indication: Gallbladder adenocarcinoma
     Route: 065
  2. GEMCITABINE [Suspect]
     Active Substance: GEMCITABINE
     Indication: Adenocarcinoma metastatic
  3. OXALIPLATIN [Suspect]
     Active Substance: OXALIPLATIN
     Indication: Gallbladder adenocarcinoma
     Route: 065
  4. OXALIPLATIN [Suspect]
     Active Substance: OXALIPLATIN
     Indication: Adenocarcinoma metastatic
  5. OXYCODONE [Suspect]
     Active Substance: OXYCODONE
     Indication: Anxiety
     Dosage: 900 MILLIGRAM DAILY; ONCE A DAY
     Route: 048
  6. OXYCODONE [Suspect]
     Active Substance: OXYCODONE
     Indication: Pain
  7. OXYCODONE [Suspect]
     Active Substance: OXYCODONE
     Indication: Cancer pain
  8. OXYCODONE [Suspect]
     Active Substance: OXYCODONE
     Indication: Abdominal pain
  9. FENTANYL [Suspect]
     Active Substance: FENTANYL\FENTANYL CITRATE
     Indication: Cancer pain
     Dosage: BASAL RATE; IV PUMP INFUSION, 120 MICROG/HOUR
     Route: 041
  10. FENTANYL [Suspect]
     Active Substance: FENTANYL\FENTANYL CITRATE
     Indication: Abdominal pain
     Dosage: DEMAND DOSE, 60 MICROG EVERY 10 MINUTES
     Route: 040
  11. FENTANYL [Suspect]
     Active Substance: FENTANYL\FENTANYL CITRATE
     Indication: Pain
  12. DURVALUMAB [Suspect]
     Active Substance: DURVALUMAB
     Indication: Gallbladder adenocarcinoma
     Route: 065
  13. DURVALUMAB [Suspect]
     Active Substance: DURVALUMAB
     Indication: Adenocarcinoma metastatic
  14. KETAMINE [Suspect]
     Active Substance: KETAMINE
     Indication: Cancer pain
     Route: 065
  15. KETAMINE [Suspect]
     Active Substance: KETAMINE
     Indication: Abdominal pain
  16. KETAMINE [Suspect]
     Active Substance: KETAMINE
     Indication: Pain
  17. MIDAZOLAM [Suspect]
     Active Substance: MIDAZOLAM
     Indication: Anxiety
     Dosage: DOSE: UP TO 4MG
     Route: 040
  18. MIDAZOLAM [Suspect]
     Active Substance: MIDAZOLAM
     Indication: Insomnia
  19. MIDAZOLAM [Suspect]
     Active Substance: MIDAZOLAM
     Indication: Restlessness
  20. CLONAZEPAM [Suspect]
     Active Substance: CLONAZEPAM
     Indication: Anxiety
     Dosage: 5 MILLIGRAM DAILY; 5MG IN 24H
     Route: 042
  21. CLONAZEPAM [Suspect]
     Active Substance: CLONAZEPAM
     Indication: Insomnia
  22. CLONAZEPAM [Suspect]
     Active Substance: CLONAZEPAM
     Indication: Restlessness
  23. CLONIDINE [Concomitant]
     Active Substance: CLONIDINE
     Indication: Cancer pain
     Dosage: 150 MICROGRAM DAILY; 75 MCG EVERY 12 HRS
     Route: 048
  24. CLONIDINE [Concomitant]
     Active Substance: CLONIDINE
     Indication: Abdominal pain
  25. CLONIDINE [Concomitant]
     Active Substance: CLONIDINE
     Indication: Pain
  26. TIZANIDINE [Concomitant]
     Active Substance: TIZANIDINE
     Indication: Cancer pain
     Dosage: DOSE: 2MG-2MG-6MG
     Route: 048
  27. TIZANIDINE [Concomitant]
     Active Substance: TIZANIDINE
     Indication: Abdominal pain
  28. TIZANIDINE [Concomitant]
     Active Substance: TIZANIDINE
     Indication: Pain
  29. LORAZEPAM [Concomitant]
     Active Substance: LORAZEPAM
     Indication: Cancer pain
     Dosage: 5 MILLIGRAM DAILY; 2.5 MG EVERY 12 HRS
     Route: 048
  30. LORAZEPAM [Concomitant]
     Active Substance: LORAZEPAM
     Indication: Abdominal pain
  31. LORAZEPAM [Concomitant]
     Active Substance: LORAZEPAM
     Indication: Pain
  32. BUTYLSCOPOLAMINE [Concomitant]
     Active Substance: BUTYLSCOPOLAMINE
     Indication: Cancer pain
     Dosage: 120 MILLIGRAM DAILY; 20 MG EVERY 4 HRS
     Route: 042
  33. BUTYLSCOPOLAMINE [Concomitant]
     Active Substance: BUTYLSCOPOLAMINE
     Indication: Abdominal pain
  34. BUTYLSCOPOLAMINE [Concomitant]
     Active Substance: BUTYLSCOPOLAMINE
     Indication: Pain
  35. ACETAMINOPHEN [Concomitant]
     Active Substance: ACETAMINOPHEN
     Indication: Cancer pain
     Dosage: 4000 MILLIGRAM DAILY; 1000 MG EVERY 6 HRS
     Route: 042
  36. ACETAMINOPHEN [Concomitant]
     Active Substance: ACETAMINOPHEN
     Indication: Abdominal pain
  37. ACETAMINOPHEN [Concomitant]
     Active Substance: ACETAMINOPHEN
     Indication: Pain

REACTIONS (3)
  - Bradypnoea [Unknown]
  - Miosis [Unknown]
  - Drug ineffective [Unknown]
